FAERS Safety Report 10476369 (Version 2)
Quarter: 2014Q4

REPORT INFORMATION
  Report Type: Spontaneous
  Country: US (occurrence: US)
  Receive Date: 20140925
  Receipt Date: 20141016
  Transmission Date: 20150528
  Serious: Yes (Other)
  Sender: FDA-Public Use
  Company Number: US-AMGEN-USASP2014072901

PATIENT
  Age: 59 Year
  Sex: Female

DRUGS (3)
  1. NEULASTA [Suspect]
     Active Substance: PEGFILGRASTIM
     Indication: NEUTROPENIA
     Dosage: UNK
     Route: 065
     Dates: start: 201307
  2. DOXIL                              /00055703/ [Concomitant]
     Dosage: UNK
  3. ZOFRAN                             /00955301/ [Suspect]
     Active Substance: ONDANSETRON HYDROCHLORIDE
     Indication: PRODUCT USED FOR UNKNOWN INDICATION
     Dosage: UNK
     Route: 065

REACTIONS (10)
  - Dizziness [Unknown]
  - Ileostomy [Unknown]
  - Electrocardiogram QT interval [Unknown]
  - Biliary tract disorder [Unknown]
  - Hypotension [Unknown]
  - Gallbladder disorder [Unknown]
  - Bone pain [Unknown]
  - Vision blurred [Unknown]
  - Asthenia [Unknown]
  - Abdominal pain upper [Unknown]
